FAERS Safety Report 18041804 (Version 1)
Quarter: 2020Q3

REPORT INFORMATION
  Report Type: Spontaneous
  Country: IT (occurrence: IT)
  Receive Date: 20200720
  Receipt Date: 20200720
  Transmission Date: 20201103
  Serious: Yes (Other)
  Sender: FDA-Public Use
  Company Number: IT-TEVA-2020-IT-1795868

PATIENT
  Age: 54 Year
  Sex: Female
  Weight: 82 kg

DRUGS (2)
  1. METHOTREXATE. [Suspect]
     Active Substance: METHOTREXATE
     Indication: PSORIATIC ARTHROPATHY
     Dosage: 12.5MG
  2. REUMAFLEX [ADENOSINE\AMINOPROPYLONE\CYANOCOBALAMIN\THIAMINE\THIMEROSAL] [Suspect]
     Active Substance: ADENOSINE\AMINOPROPYLONE\CYANOCOBALAMIN\THIAMINE\THIMEROSAL
     Route: 058
     Dates: start: 20191020, end: 20191202

REACTIONS (1)
  - Drug-induced liver injury [Recovered/Resolved]
